FAERS Safety Report 8451123-1 (Version None)
Quarter: 2012Q2

REPORT INFORMATION
  Report Type: 
  Country: None (occurrence: None)
  Receive Date: 20120620
  Receipt Date: 20120611
  Transmission Date: 20120825
  Serious: Yes (Other)
  Sender: FDA-Public Use
  Company Number: US-ASTRAZENECA-2009SE24460

PATIENT
  Age: 84 Year
  Sex: Female
  Weight: 71.2 kg

DRUGS (11)
  1. LEVOTHYROXINE SODIUM [Concomitant]
     Route: 048
  2. NEXIUM [Suspect]
     Route: 048
  3. SERTRALINE HYDROCHLORIDE [Concomitant]
     Route: 048
  4. TAZTIA XT [Concomitant]
     Route: 048
  5. LISINOPRIL [Concomitant]
     Route: 048
  6. FUROSEMIDE [Concomitant]
     Route: 048
  7. LIPITOR [Concomitant]
     Route: 048
  8. REGLAN [Concomitant]
     Route: 048
  9. LORTAB [Concomitant]
     Indication: PAIN
     Dosage: 10/450 MG EVERY 6 HOURS
     Route: 048
     Dates: start: 20090804
  10. ALPRAZOLAM [Concomitant]
     Route: 048
  11. XYLON [Concomitant]

REACTIONS (9)
  - CONTUSION [None]
  - KYPHOSIS [None]
  - CARDIOMEGALY [None]
  - MUSCULOSKELETAL CHEST PAIN [None]
  - PARKINSON'S DISEASE [None]
  - FALL [None]
  - LIMB INJURY [None]
  - UPPER LIMB FRACTURE [None]
  - ARTHRALGIA [None]
